FAERS Safety Report 20390676 (Version 1)
Quarter: 2022Q1

REPORT INFORMATION
  Report Type: Report from Study
  Country: MX (occurrence: MX)
  Receive Date: 20220128
  Receipt Date: 20220128
  Transmission Date: 20220423
  Serious: No
  Sender: FDA-Public Use
  Company Number: MX-UCBSA-2022001580

PATIENT
  Age: 69 Year
  Sex: Female

DRUGS (8)
  1. ROTIGOTINE [Suspect]
     Active Substance: ROTIGOTINE
     Indication: Parkinsonism
     Dosage: 8 MILLIGRAM, ONCE DAILY (QD)
     Route: 062
     Dates: start: 20211224
  2. SERTRALINE HYDROCHLORIDE [Concomitant]
     Active Substance: SERTRALINE HYDROCHLORIDE
     Indication: Antidepressant therapy
  3. CARBIDOPA AND LEVODOPA [Concomitant]
     Active Substance: CARBIDOPA\LEVODOPA
     Indication: Parkinson^s disease
  4. VITAMIN C [Concomitant]
     Active Substance: ASCORBIC ACID
     Indication: Vitamin supplementation
  5. ZINC [Concomitant]
     Active Substance: ZINC
     Indication: Vitamin supplementation
  6. FISH OIL [Concomitant]
     Active Substance: FISH OIL
     Indication: Vitamin supplementation
  7. MAGNESIUM [Concomitant]
     Active Substance: MAGNESIUM
     Indication: Vitamin supplementation
  8. VITAMIN D3 [Concomitant]
     Active Substance: CHOLECALCIFEROL
     Indication: Product used for unknown indication

REACTIONS (2)
  - Dizziness [Not Recovered/Not Resolved]
  - Device adhesion issue [Unknown]

NARRATIVE: CASE EVENT DATE: 20211224
